FAERS Safety Report 7598145-0 (Version None)
Quarter: 2011Q3

REPORT INFORMATION
  Report Type: 
  Country: None (occurrence: None)
  Receive Date: 20110708
  Receipt Date: 20110706
  Transmission Date: 20111222
  Serious: Yes (Other)
  Sender: FDA-Public Use
  Company Number: FR-BRISTOL-MYERS SQUIBB COMPANY-15649601

PATIENT
  Age: 38 Year
  Sex: Female
  Weight: 60 kg

DRUGS (5)
  1. ABILIFY [Suspect]
     Indication: BIPOLAR DISORDER
     Dosage: 1DF=5-10MG DAILY
     Route: 048
     Dates: start: 20101216, end: 20110314
  2. CLORAZEPATE DIPOTASSIUM [Suspect]
     Indication: INSOMNIA
     Route: 048
     Dates: start: 20100401
  3. VALPROIC ACID [Suspect]
     Indication: MOOD SWINGS
     Route: 048
     Dates: end: 20110314
  4. HEPTAMYL [Suspect]
     Indication: ORTHOSTATIC HYPERTENSION
     Dosage: 1DF=2 UNIT NOT SPECIFIED
     Route: 048
     Dates: start: 20100101
  5. CHLORPROMAZINE HCL [Suspect]
     Indication: ANXIETY
     Dosage: 1DF=25-75MG
     Route: 048
     Dates: start: 20070101

REACTIONS (2)
  - ABORTION SPONTANEOUS [None]
  - PREGNANCY [None]
